FAERS Safety Report 17661233 (Version 1)
Quarter: 2020Q2

REPORT INFORMATION
  Report Type: Spontaneous
  Country: US (occurrence: US)
  Receive Date: 20200412
  Receipt Date: 20200412
  Transmission Date: 20200713
  Serious: Yes (Other)
  Sender: FDA-Public Use
  Company Number: None

PATIENT
  Age: 64 Year
  Sex: Female
  Weight: 84.6 kg

DRUGS (5)
  1. CONTRAVE [Suspect]
     Active Substance: BUPROPION HYDROCHLORIDE\NALTREXONE HYDROCHLORIDE
     Indication: WEIGHT DECREASED
     Route: 048
     Dates: start: 20200326, end: 20200411
  2. VITAMIN B [Concomitant]
     Active Substance: VITAMIN B
  3. VITAMIN D [Concomitant]
     Active Substance: VITAMIN D NOS
  4. LIPITOR [Concomitant]
     Active Substance: ATORVASTATIN CALCIUM
  5. MAGNESIUM [Concomitant]
     Active Substance: MAGNESIUM

REACTIONS (5)
  - Middle insomnia [None]
  - Poor quality sleep [None]
  - Dizziness [None]
  - Skin abrasion [None]
  - Pruritus [None]

NARRATIVE: CASE EVENT DATE: 20200411
